FAERS Safety Report 14486122 (Version 2)
Quarter: 2018Q1

REPORT INFORMATION
  Report Type: Report from Study
  Country: CA (occurrence: CA)
  Receive Date: 20180205
  Receipt Date: 20180208
  Transmission Date: 20180509
  Serious: Yes (Other)
  Sender: FDA-Public Use
  Company Number: CA-JNJFOC-20180203018

PATIENT
  Age: 43 Year
  Sex: Female
  Weight: 71.8 kg

DRUGS (2)
  1. REMICADE [Suspect]
     Active Substance: INFLIXIMAB
     Indication: CROHN^S DISEASE
     Dosage: STRENGTH = 100 MG
     Route: 042
  2. REMICADE [Suspect]
     Active Substance: INFLIXIMAB
     Indication: CROHN^S DISEASE
     Route: 042
     Dates: start: 20170724

REACTIONS (5)
  - Bloody discharge [Unknown]
  - Hysterectomy [Unknown]
  - Product use issue [Unknown]
  - Scar pain [Unknown]
  - Off label use [Unknown]

NARRATIVE: CASE EVENT DATE: 2018
